FAERS Safety Report 10166436 (Version 1)
Quarter: 2014Q2

REPORT INFORMATION
  Report Type: Spontaneous
  Country: US (occurrence: None)
  Receive Date: 20140509
  Receipt Date: 20140509
  Transmission Date: 20141212
  Serious: Yes (Hospitalization)
  Sender: FDA-Public Use
  Company Number: None

PATIENT
  Age: 73 Year
  Sex: Female
  Weight: 89.8 kg

DRUGS (1)
  1. LINAGLIPTIN [Suspect]

REACTIONS (4)
  - Dizziness [None]
  - Hypoglycaemia [None]
  - Vomiting [None]
  - Malaise [None]
